FAERS Safety Report 4337219-4 (Version None)
Quarter: 2004Q2

REPORT INFORMATION
  Report Type: 
  Country: None (occurrence: None)
  Receive Date: 20040401
  Receipt Date: 20030317
  Transmission Date: 20050107
  Serious: Yes (Hospitalization)
  Sender: FDA-Public Use
  Company Number: OSCN-PR-0303S-0084(0)

PATIENT
  Age: 16 Year
  Sex: Male

DRUGS (1)
  1. OMNISCAN [Suspect]
     Dosage: 10 ML, SINGLE DOSE, I.V.
     Route: 042
     Dates: start: 20030311, end: 20030311

REACTIONS (2)
  - ANAPHYLACTIC REACTION [None]
  - INJECTION SITE BURNING [None]
